FAERS Safety Report 7790271-6 (Version None)
Quarter: 2011Q3

REPORT INFORMATION
  Report Type: 
  Country: None (occurrence: None)
  Receive Date: 20110930
  Receipt Date: 20110926
  Transmission Date: 20111222
  Serious: Yes (Life-Threatening, Other)
  Sender: FDA-Public Use
  Company Number: PHHY2011BR85529

PATIENT
  Sex: Male

DRUGS (4)
  1. LOSARTAN POTASSIUM [Suspect]
     Dosage: 100 MG, UNK
  2. APRESOLINE [Suspect]
     Dosage: 25 MG, UNK
  3. ATENOLOL [Suspect]
     Dosage: 50 MG, UNK
  4. APRESOLINE [Suspect]
     Dosage: 50 MG, HALF TABLET

REACTIONS (3)
  - CEREBROVASCULAR ACCIDENT [None]
  - WRONG TECHNIQUE IN DRUG USAGE PROCESS [None]
  - BLOOD PRESSURE INCREASED [None]
